FAERS Safety Report 7767459-3 (Version None)
Quarter: 2011Q3

REPORT INFORMATION
  Report Type: 
  Country: None (occurrence: None)
  Receive Date: 20110922
  Receipt Date: 20100823
  Transmission Date: 20111222
  Serious: No
  Sender: FDA-Public Use
  Company Number: US-ASTRAZENECA-2010SE39596

PATIENT
  Age: 32 Year
  Sex: Male
  Weight: 97.5 kg

DRUGS (4)
  1. LAMICTAL [Concomitant]
  2. SEROQUEL XR [Suspect]
     Indication: BIPOLAR DISORDER
     Route: 048
  3. LORTAB [Concomitant]
  4. FOCALIN [Concomitant]

REACTIONS (2)
  - ACCIDENT AT WORK [None]
  - INTERVERTEBRAL DISC PROTRUSION [None]
